FAERS Safety Report 5274415-6 (Version None)
Quarter: 2007Q1

REPORT INFORMATION
  Report Type: 
  Country: None (occurrence: None)
  Receive Date: 20070323
  Receipt Date: 20070312
  Transmission Date: 20070707
  Serious: Yes (Hospitalization)
  Sender: FDA-Public Use
  Company Number: JP-PFIZER INC-2007014876

PATIENT
  Sex: Male
  Weight: 50.5 kg

DRUGS (5)
  1. GABAPEN [Suspect]
     Indication: EPILEPSY
     Route: 048
  2. PHENYTOIN [Suspect]
     Indication: EPILEPSY
     Route: 048
  3. CLOBAZAM [Suspect]
     Indication: EPILEPSY
     Route: 048
  4. NITRAZEPAM [Suspect]
     Indication: EPILEPSY
     Route: 048
  5. ZONISAMIDE [Suspect]
     Indication: EPILEPSY
     Route: 048

REACTIONS (6)
  - ANTICONVULSANT DRUG LEVEL INCREASED [None]
  - DECREASED ACTIVITY [None]
  - DEPRESSED LEVEL OF CONSCIOUSNESS [None]
  - MYALGIA [None]
  - NAUSEA [None]
  - THERAPEUTIC AGENT TOXICITY [None]
